FAERS Safety Report 4331561-9 (Version None)
Quarter: 2004Q1

REPORT INFORMATION
  Report Type: 
  Country: None (occurrence: None)
  Receive Date: 20040329
  Receipt Date: 20040316
  Transmission Date: 20041129
  Serious: No
  Sender: FDA-Public Use
  Company Number: 2003UW13765

PATIENT
  Age: 56 Year
  Sex: Female
  Weight: 60.3284 kg

DRUGS (11)
  1. XYLOCAINE W/ EPINEPHRINE [Suspect]
     Indication: LOCAL ANAESTHESIA
     Dosage: 20 CC ONCE SQ
     Dates: start: 20030926, end: 20030926
  2. MARCAINE HCL W/ EPINEPHRINE [Suspect]
     Indication: LOCAL ANAESTHESIA
     Dosage: 10 CC ONCE SQ
     Dates: start: 20030926, end: 20030926
  3. SYNTHROID [Concomitant]
  4. FEMHRT [Concomitant]
  5. LIPITOR [Concomitant]
  6. BEXTRA [Concomitant]
  7. GLUCOSAMINE [Concomitant]
  8. ASPIRIN [Concomitant]
  9. VITAMINS NOS [Concomitant]
  10. DILAUDID [Concomitant]
  11. VERSED [Concomitant]

REACTIONS (2)
  - ANAESTHETIC COMPLICATION [None]
  - HYPERTENSION [None]
